FAERS Safety Report 9206656 (Version 2)
Quarter: 2013Q2

REPORT INFORMATION
  Report Type: Spontaneous
  Country: DK (occurrence: DE)
  Receive Date: 20130403
  Receipt Date: 20130515
  Transmission Date: 20140414
  Serious: Yes (Life-Threatening, Hospitalization)
  Sender: FDA-Public Use
  Company Number: DE-FRI-1000043959

PATIENT
  Age: 33 Year
  Sex: Male

DRUGS (1)
  1. CITALOPRAM [Suspect]
     Indication: MAJOR DEPRESSION
     Dosage: 20 MG
     Route: 048

REACTIONS (4)
  - Suicide attempt [Recovering/Resolving]
  - Asphyxia [Recovering/Resolving]
  - Pharyngeal injury [Recovering/Resolving]
  - Laryngeal injury [Recovering/Resolving]
